FAERS Safety Report 16046669 (Version 2)
Quarter: 2019Q1

REPORT INFORMATION
  Report Type: Spontaneous
  Country: AU (occurrence: AU)
  Receive Date: 20190307
  Receipt Date: 20190326
  Transmission Date: 20190418
  Serious: Yes (Other)
  Sender: FDA-Public Use
  Company Number: AU-ABBVIE-19K-008-2691549-00

PATIENT
  Age: 34 Year
  Sex: Female

DRUGS (5)
  1. METHYLPREDNISOLONE SODIUM SUCCINATE. [Suspect]
     Active Substance: METHYLPREDNISOLONE SODIUM SUCCINATE
     Indication: PRODUCT USED FOR UNKNOWN INDICATION
     Route: 065
  2. MYCOPHENOLATE MOFETIL. [Suspect]
     Active Substance: MYCOPHENOLATE MOFETIL
     Indication: PRODUCT USED FOR UNKNOWN INDICATION
     Route: 065
  3. HUMIRA [Suspect]
     Active Substance: ADALIMUMAB
     Indication: PYODERMA GANGRENOSUM
     Route: 058
     Dates: start: 2018
  4. ETANERCEPT [Suspect]
     Active Substance: ETANERCEPT
     Indication: PYODERMA GANGRENOSUM
     Route: 065
  5. CICLOSPORIN [Suspect]
     Active Substance: CYCLOSPORINE
     Indication: PYODERMA GANGRENOSUM
     Route: 065

REACTIONS (7)
  - Quality of life decreased [Unknown]
  - Pain of skin [Not Recovered/Not Resolved]
  - Skin ulcer [Not Recovered/Not Resolved]
  - Product use in unapproved indication [Unknown]
  - Drug effect incomplete [Unknown]
  - Drug intolerance [Unknown]
  - Disease progression [Unknown]
